FAERS Safety Report 11325678 (Version 1)
Quarter: 2015Q3

REPORT INFORMATION
  Report Type: Report from Study
  Country: DK (occurrence: DK)
  Receive Date: 20150731
  Receipt Date: 20150731
  Transmission Date: 20151125
  Serious: Yes (Death)
  Sender: FDA-Public Use
  Company Number: DK-ALKEM-001093

PATIENT
  Age: 57 Year
  Sex: Female
  Weight: 78 kg

DRUGS (5)
  1. CHLORPROTHIXENE [Concomitant]
     Active Substance: CHLORPROTHIXENE
  2. OXAZEPAM. [Concomitant]
     Active Substance: OXAZEPAM
  3. PARACETAMOL [Concomitant]
     Active Substance: ACETAMINOPHEN
  4. QUETIAPINE/QUETIAPINE FUMARATE [Suspect]
     Active Substance: QUETIAPINE FUMARATE
     Indication: PRODUCT USED FOR UNKNOWN INDICATION
  5. CHLORDIAZEPOXIDE [Concomitant]
     Active Substance: CHLORDIAZEPOXIDE

REACTIONS (2)
  - Toxicity to various agents [Fatal]
  - Ketoacidosis [Fatal]
